FAERS Safety Report 21830137 (Version 1)
Quarter: 2023Q1

REPORT INFORMATION
  Report Type: Spontaneous
  Country: US (occurrence: US)
  Receive Date: 20230106
  Receipt Date: 20230106
  Transmission Date: 20230417
  Serious: No
  Sender: FDA-Public Use
  Company Number: US-ABBVIE-4211002

PATIENT
  Age: 65 Year
  Sex: Female
  Weight: 47.173 kg

DRUGS (16)
  1. RINVOQ [Suspect]
     Active Substance: UPADACITINIB
     Indication: Rheumatoid arthritis
     Dosage: FORM STRENGTH: 15 MG
     Route: 048
     Dates: start: 20220202
  2. COVID-19 vaccine [Concomitant]
     Indication: COVID-19 immunisation
     Dosage: PFIZER/MODERNA COMBINATION, ONE IN ONCE
     Route: 030
  3. LUTEIN [Concomitant]
     Active Substance: LUTEIN
     Indication: Eye disorder
     Route: 065
  4. VITAMIN D [Concomitant]
     Active Substance: VITAMIN D NOS
     Indication: Bone disorder
     Route: 065
  5. HYDROCODONE [Concomitant]
     Active Substance: HYDROCODONE
     Indication: Pain
     Route: 065
  6. VALACYCLOVIR HYDROCHLORIDE [Concomitant]
     Active Substance: VALACYCLOVIR HYDROCHLORIDE
     Indication: Herpes simplex
     Route: 065
  7. AMLODIPINE [Concomitant]
     Active Substance: AMLODIPINE BESYLATE
     Indication: Hypertension
     Route: 065
  8. Pb8 probiotic [Concomitant]
     Indication: Supplementation therapy
     Route: 065
  9. MAGNESIUM;POTASSIUM ASPARTATE [Concomitant]
     Indication: Bone disorder
     Route: 065
  10. HYALURONIC ACID [Concomitant]
     Active Substance: HYALURONIC ACID
     Indication: Skin disorder
     Route: 065
  11. SULFASALAZINE [Concomitant]
     Active Substance: SULFASALAZINE
     Indication: Rheumatoid arthritis
     Route: 065
  12. PRASTERONE [Concomitant]
     Active Substance: PRASTERONE
     Indication: Hormone therapy
     Route: 065
  13. ACETAMINOPHEN [Concomitant]
     Active Substance: ACETAMINOPHEN
     Indication: Pain
     Route: 065
  14. PROGESTERONE [Concomitant]
     Active Substance: PROGESTERONE
     Indication: Hormone therapy
     Route: 065
  15. ESTROGENS [Concomitant]
     Active Substance: ESTROGENS
     Indication: Hormone therapy
     Route: 065
  16. TESTOSTERONE [Concomitant]
     Active Substance: TESTOSTERONE
     Indication: Hormone therapy
     Route: 065

REACTIONS (2)
  - Rash pruritic [Recovering/Resolving]
  - Rash papular [Recovering/Resolving]

NARRATIVE: CASE EVENT DATE: 20220501
